FAERS Safety Report 5142318-3 (Version None)
Quarter: 2006Q4

REPORT INFORMATION
  Report Type: 
  Country: None (occurrence: None)
  Receive Date: 20061102
  Receipt Date: 20060821
  Transmission Date: 20070319
  Serious: Yes (Death)
  Sender: FDA-Public Use
  Company Number: PHBS2006SE12479

PATIENT
  Age: 77 Year
  Sex: Female

DRUGS (14)
  1. LEPONEX [Suspect]
     Dosage: 25 MG/D
     Route: 048
     Dates: start: 20060417
  2. GUTRON [Concomitant]
     Dosage: 5 MG/D
     Route: 048
  3. MINIRIN ^AVENTIS PHARMA^ [Concomitant]
     Dosage: 120 MICROGRAM LYOPHILISATE
     Route: 048
  4. FOLACIN [Concomitant]
     Dosage: 5 MG/D
     Route: 048
  5. BEHEPAN [Concomitant]
     Dosage: 1 MG/ML/D
  6. VIROFRAL [Concomitant]
     Dosage: 50 MG/D
     Route: 048
  7. KALIUM RETARD [Concomitant]
     Dosage: 750 MG/D
     Route: 048
  8. MADOPARK QUICK MITE [Concomitant]
     Dosage: 50 MG/12.5 MG/D
     Route: 048
  9. MADOPARK - SLOW RELEASE [Concomitant]
     Dosage: 100 MG/25 MG/D
     Route: 048
  10. ERGENYL - SLOW RELEASE [Concomitant]
     Dosage: 300 MG/D
     Route: 048
  11. MOVICOL [Concomitant]
     Route: 048
  12. SIFROL [Concomitant]
     Dosage: 0.18 MG/D
     Route: 048
  13. IDEOS [Concomitant]
     Dosage: 500 MG/400 IE/D
     Route: 048
  14. RISEDRONIC ACID [Concomitant]
     Route: 048

REACTIONS (7)
  - ENTERITIS [None]
  - HAEMOGLOBIN DECREASED [None]
  - NEOPLASM MALIGNANT [None]
  - NEUTROPHIL COUNT DECREASED [None]
  - PANCYTOPENIA [None]
  - VIRAL INFECTION [None]
  - WHITE BLOOD CELL COUNT DECREASED [None]
